FAERS Safety Report 21739149 (Version 1)
Quarter: 2022Q4

REPORT INFORMATION
  Report Type: Spontaneous
  Country: PK (occurrence: PK)
  Receive Date: 20221216
  Receipt Date: 20221216
  Transmission Date: 20230113
  Serious: Yes (Death, Life-Threatening, Hospitalization, Other)
  Sender: FDA-Public Use
  Company Number: PK-Accord-291524

PATIENT
  Age: 75 Year
  Sex: Female

DRUGS (1)
  1. METHOTREXATE [Suspect]
     Active Substance: METHOTREXATE
     Dosage: INJECTABLE, FOUR DOSES OF METHOTREXATE, 50MG EACH, TOTAL CUMULATIVE DOSE ADMINISTRATION OF 200MG
     Route: 042

REACTIONS (17)
  - Respiratory distress [Fatal]
  - Product dispensing error [Fatal]
  - Wrong product administered [Fatal]
  - Accidental overdose [Fatal]
  - Toxicity to various agents [Fatal]
  - Condition aggravated [Fatal]
  - Stomatitis [Unknown]
  - Decreased appetite [Unknown]
  - Fatigue [Unknown]
  - Ulcer haemorrhage [Fatal]
  - Dermatitis [Unknown]
  - Acute kidney injury [Fatal]
  - Neutropenic sepsis [Fatal]
  - Rash vesicular [Unknown]
  - Platelet count decreased [Fatal]
  - Alopecia [Unknown]
  - Incorrect dose administered [Fatal]
